FAERS Safety Report 6465027-7 (Version None)
Quarter: 2009Q4

REPORT INFORMATION
  Report Type: 
  Country: None (occurrence: None)
  Receive Date: 20091123
  Receipt Date: 20091112
  Transmission Date: 20100525
  Serious: Yes (Other)
  Sender: FDA-Public Use
  Company Number: 2009-01715

PATIENT
  Age: 69 Year
  Sex: Female
  Weight: 55 kg

DRUGS (2)
  1. VELCADE [Suspect]
     Indication: MULTIPLE MYELOMA
     Dosage: 1.3MG/M2, INTRAVENOUS
     Route: 042
  2. DEXAMETHASONE TAB [Concomitant]

REACTIONS (2)
  - ERYTHEMA MULTIFORME [None]
  - ORAL HERPES [None]
